FAERS Safety Report 16918384 (Version 5)
Quarter: 2020Q3

REPORT INFORMATION
  Report Type: Report from Study
  Country: PL (occurrence: PL)
  Receive Date: 20191015
  Receipt Date: 20200622
  Transmission Date: 20201105
  Serious: Yes (Hospitalization)
  Sender: FDA-Public Use
  Company Number: PL-JNJFOC-20191006017

PATIENT
  Age: 31 Year
  Sex: Female
  Weight: 61.3 kg

DRUGS (10)
  1. YASMIN [Concomitant]
     Active Substance: DROSPIRENONE\ETHINYL ESTRADIOL
     Indication: CONTRACEPTION
     Route: 065
     Dates: start: 20181213
  2. ADALIMUMAB [Suspect]
     Active Substance: ADALIMUMAB
     Dosage: WEEK 2
     Route: 058
     Dates: start: 20190430
  3. RIFAMAZID [Concomitant]
     Active Substance: ISONIAZID\RIFAMPIN
     Dosage: INDEFINITE QUANTIFERON
     Route: 065
     Dates: start: 20190416
  4. ADALIMUMAB [Suspect]
     Active Substance: ADALIMUMAB
     Dosage: WEEK 16
     Route: 058
     Dates: start: 20190625
  5. ADALIMUMAB [Suspect]
     Active Substance: ADALIMUMAB
     Dosage: WEEK 24
     Route: 058
     Dates: start: 20190809
  6. ENTOCORT [Concomitant]
     Active Substance: BUDESONIDE
     Indication: CROHN^S DISEASE
     Route: 065
     Dates: start: 20180828
  7. PICO?SALAX [Concomitant]
     Active Substance: ANHYDROUS CITRIC ACID\MAGNESIUM OXIDE\SODIUM PICOSULFATE
     Indication: COLONOSCOPY
     Route: 065
     Dates: start: 20190401, end: 20190401
  8. ADALIMUMAB [Suspect]
     Active Substance: ADALIMUMAB
     Indication: CROHN^S DISEASE
     Dosage: WEEK 0
     Route: 042
     Dates: start: 20190416
  9. ASAMAX [Concomitant]
     Active Substance: MESALAMINE
     Indication: CROHN^S DISEASE
     Route: 065
     Dates: start: 20180828, end: 20190315
  10. FENTANYL. [Concomitant]
     Active Substance: FENTANYL
     Indication: ANAESTHESIA
     Route: 065
     Dates: start: 20190402, end: 20190404

REACTIONS (1)
  - Epilepsy [Recovered/Resolved]

NARRATIVE: CASE EVENT DATE: 20191002
